FAERS Safety Report 7973342-0 (Version None)
Quarter: 2011Q4

REPORT INFORMATION
  Report Type: 
  Country: None (occurrence: None)
  Receive Date: 20111213
  Receipt Date: 20110606
  Transmission Date: 20120403
  Serious: No
  Sender: FDA-Public Use
  Company Number: US-AMGEN-USASP2011029084

PATIENT
  Age: 83 Year
  Sex: Male

DRUGS (3)
  1. VIDAZA [Concomitant]
     Dosage: UNK
     Dates: start: 20080804
  2. NEULASTA [Suspect]
     Indication: CHEMOTHERAPY
     Dates: start: 20080811
  3. ARANESP [Suspect]
     Indication: ANAEMIA OF MALIGNANT DISEASE
     Dates: start: 20101215

REACTIONS (1)
  - TRANSFUSION [None]
